FAERS Safety Report 8064996-1 (Version None)
Quarter: 2012Q1

REPORT INFORMATION
  Report Type: 
  Country: None (occurrence: None)
  Receive Date: 20120124
  Receipt Date: 20120118
  Transmission Date: 20120608
  Serious: No
  Sender: FDA-Public Use
  Company Number: US-BIOGENIDEC-2012BI002305

PATIENT
  Age: 39 Year
  Sex: Female

DRUGS (1)
  1. TYSABRI [Suspect]
     Indication: MULTIPLE SCLEROSIS
     Route: 042
     Dates: start: 20110826

REACTIONS (5)
  - SENSATION OF HEAVINESS [None]
  - BALANCE DISORDER [None]
  - HYPOAESTHESIA [None]
  - URINARY TRACT INFECTION [None]
  - DRUG INEFFECTIVE [None]
